FAERS Safety Report 16245651 (Version 1)
Quarter: 2019Q2

REPORT INFORMATION
  Report Type: Spontaneous
  Country: US (occurrence: US)
  Receive Date: 20190426
  Receipt Date: 20190426
  Transmission Date: 20190711
  Serious: No
  Sender: FDA-Public Use
  Company Number: US-FOUNDATIONCONSUMERHC-2019-US-002195

PATIENT
  Age: 20 Year
  Sex: Female
  Weight: 102.06 kg

DRUGS (1)
  1. PLAN B ONE-STEP [Suspect]
     Active Substance: LEVONORGESTREL
     Indication: CONTRACEPTION
     Dosage: CALLER HAS BEEN TAKING 3-5 DOSES PER WEEK, AS NEEDED AFTER INTERCOURSE OCCURED
     Route: 048
     Dates: start: 201807, end: 20190130

REACTIONS (4)
  - Menstrual disorder [Not Recovered/Not Resolved]
  - Galactorrhoea [Recovered/Resolved]
  - Off label use [Recovered/Resolved]
  - Intentional product misuse [Recovered/Resolved]

NARRATIVE: CASE EVENT DATE: 201807
